FAERS Safety Report 19084562 (Version 1)
Quarter: 2021Q2

REPORT INFORMATION
  Report Type: Spontaneous
  Country: US (occurrence: US)
  Receive Date: 20210401
  Receipt Date: 20210401
  Transmission Date: 20210717
  Serious: No
  Sender: FDA-Public Use
  Company Number: US-IBSA PHARMA-2020-IBS-00747

PATIENT
  Age: 67 Year
  Weight: 90.7 kg

DRUGS (1)
  1. FLECTOR [Suspect]
     Active Substance: DICLOFENAC EPOLAMINE
     Indication: ARTHRALGIA
     Dosage: 1 DF, BID
     Route: 061

REACTIONS (3)
  - Gait disturbance [Unknown]
  - Product use in unapproved indication [Unknown]
  - Off label use [Unknown]
